FAERS Safety Report 17096396 (Version 2)
Quarter: 2020Q1

REPORT INFORMATION
  Report Type: Spontaneous
  Country: SE (occurrence: SE)
  Receive Date: 20191202
  Receipt Date: 20200331
  Transmission Date: 20200409
  Serious: Yes (Hospitalization)
  Sender: FDA-Public Use
  Company Number: SE-SUN PHARMACEUTICAL INDUSTRIES LTD-2019RR-229424

PATIENT
  Age: 17 Year
  Sex: Female

DRUGS (3)
  1. PROPAVAN [Suspect]
     Active Substance: PROPIOMAZINE
     Indication: PRODUCT USED FOR UNKNOWN INDICATION
     Dosage: ()
     Route: 065
     Dates: start: 20180604, end: 20180604
  2. LERGIGAN (PROMETHAZINE HYDROCHLORIDE) [Suspect]
     Active Substance: PROMETHAZINE HYDROCHLORIDE
     Indication: PRODUCT USED FOR UNKNOWN INDICATION
     Dosage: ()
     Route: 048
     Dates: start: 20180604, end: 20180604
  3. SERTRALINE [Suspect]
     Active Substance: SERTRALINE HYDROCHLORIDE
     Indication: PRODUCT USED FOR UNKNOWN INDICATION
     Dosage: ()
     Route: 065
     Dates: start: 20180604, end: 20180604

REACTIONS (4)
  - Depressed level of consciousness [Unknown]
  - Mydriasis [Unknown]
  - Suicidal ideation [Unknown]
  - Intentional overdose [Unknown]

NARRATIVE: CASE EVENT DATE: 20180604
